FAERS Safety Report 17454779 (Version 1)
Quarter: 2020Q1

REPORT INFORMATION
  Report Type: Spontaneous
  Country: NL (occurrence: NL)
  Receive Date: 20200225
  Receipt Date: 20200225
  Transmission Date: 20200409
  Serious: Yes (Other)
  Sender: FDA-Public Use
  Company Number: NL-TEVA-2020-NL-1191536

PATIENT
  Sex: Female
  Weight: 113 kg

DRUGS (3)
  1. PREDNISOLONE. [Suspect]
     Active Substance: PREDNISOLONE
     Indication: MYALGIA
     Dosage: 10 MILLIGRAM DAILY; TABLET, 5 MG (MILLIGRAM), 1 TIME A DAY,
     Dates: start: 201910
  2. PREDNISOLONE. [Suspect]
     Active Substance: PREDNISOLONE
     Indication: FATIGUE
  3. HYDROCORTISON [Concomitant]
     Active Substance: HYDROCORTISONE
     Route: 065

REACTIONS (1)
  - Chorioretinopathy [Not Recovered/Not Resolved]
